FAERS Safety Report 8941189 (Version 1)
Quarter: 2012Q4

REPORT INFORMATION
  Report Type: Report from Study
  Country: GB (occurrence: GB)
  Receive Date: 20121203
  Receipt Date: 20121203
  Transmission Date: 20130627
  Serious: Yes (Life-Threatening)
  Sender: FDA-Public Use
  Company Number: GB-ROCHE-1161233

PATIENT
  Age: 73 Year
  Sex: Male
  Weight: 78.5 kg

DRUGS (5)
  1. BEVACIZUMAB [Suspect]
     Indication: GASTRIC CANCER
     Dosage: Actual dose given at most recent administration:589 mg on 17/Jul/2012
     Route: 042
     Dates: start: 20120717
  2. CAPECITABINE [Suspect]
     Indication: GASTRIC CANCER
     Dosage: Actual dose given at most recent administration:2500mg daily on 27/Jul/2012
     Route: 048
     Dates: start: 20120717
  3. EPIRUBICIN [Suspect]
     Indication: GASTRIC CANCER
     Dosage: Actual dose given at most recent administration:95 mg on 17/Jul/2012
     Route: 042
     Dates: start: 20120717
  4. CISPLATIN [Suspect]
     Indication: GASTRIC CANCER
     Dosage: Actual dose given at most recent administration:112 mg on 17/Jul/2012
     Route: 042
     Dates: start: 20120717
  5. TAMSULOSIN [Concomitant]
     Route: 048

REACTIONS (1)
  - Cerebral ischaemia [Recovered/Resolved]
